FAERS Safety Report 6657683-5 (Version None)
Quarter: 2010Q1

REPORT INFORMATION
  Report Type: 
  Country: None (occurrence: None)
  Receive Date: 20100319
  Receipt Date: 20090330
  Transmission Date: 20100710
  Serious: Yes (Other)
  Sender: FDA-Public Use
  Company Number: 2009SP006966

PATIENT
  Sex: Male

DRUGS (2)
  1. PEG-INTRON [Suspect]
     Indication: HEPATITIS C
     Dates: end: 20020101
  2. REBETOL [Suspect]
     Indication: HEPATITIS C
     Dates: end: 20020101

REACTIONS (2)
  - ADVERSE EVENT [None]
  - NEUROPATHY PERIPHERAL [None]
